FAERS Safety Report 5042400-5 (Version None)
Quarter: 2006Q2

REPORT INFORMATION
  Report Type: 
  Country: None (occurrence: None)
  Receive Date: 20060627
  Receipt Date: 20060616
  Transmission Date: 20061013
  Serious: Yes (Hospitalization)
  Sender: FDA-Public Use
  Company Number: 2006-06-0987

PATIENT
  Age: 60 Year
  Sex: Female
  Weight: 46 kg

DRUGS (7)
  1. TEMOZOLOMIDE CAPSULES [Suspect]
     Indication: GLIOBLASTOMA MULTIFORME
     Dosage: 75-150 MG/M2* ORAL
     Route: 048
     Dates: start: 20060327, end: 20060510
  2. TEMOZOLOMIDE CAPSULES [Suspect]
     Indication: GLIOBLASTOMA MULTIFORME
     Dosage: 75-150 MG/M2* ORAL
     Route: 048
     Dates: start: 20060327, end: 20060613
  3. TEMOZOLOMIDE CAPSULES [Suspect]
     Indication: GLIOBLASTOMA MULTIFORME
     Dosage: 75-150 MG/M2* ORAL
     Route: 048
     Dates: start: 20060609, end: 20060613
  4. KYTRIL GRANULES [Concomitant]
  5. BACTRAMIN GRANULES [Concomitant]
  6. ZONEGRAN [Concomitant]
  7. RADIATION THERAPY [Concomitant]

REACTIONS (2)
  - MALAISE [None]
  - REFLUX OESOPHAGITIS [None]
